FAERS Safety Report 12051252 (Version 1)
Quarter: 2016Q1

REPORT INFORMATION
  Report Type: Spontaneous
  Country: US (occurrence: None)
  Receive Date: 20160208
  Receipt Date: 20160208
  Transmission Date: 20160526
  Serious: No
  Sender: FDA-Public Use
  Company Number: None

PATIENT
  Age: 24 Year
  Sex: Female
  Weight: 62.6 kg

DRUGS (6)
  1. BUSPAR [Concomitant]
     Active Substance: BUSPIRONE HYDROCHLORIDE
  2. XYREM [Concomitant]
     Active Substance: SODIUM OXYBATE
  3. EFFEXOR [Concomitant]
     Active Substance: VENLAFAXINE HYDROCHLORIDE
  4. XYREM [Suspect]
     Active Substance: SODIUM OXYBATE
     Indication: CATAPLEXY
     Dosage: 4.5 GM IN 60 MLS WATER, TWICE DAILY, TAKEN BY MOUTH
     Dates: start: 20160119, end: 20160204
  5. ATIVAN [Concomitant]
     Active Substance: LORAZEPAM
  6. XYREM [Suspect]
     Active Substance: SODIUM OXYBATE
     Indication: NARCOLEPSY
     Dosage: 4.5 GM IN 60 MLS WATER, TWICE DAILY, TAKEN BY MOUTH
     Dates: start: 20160119, end: 20160204

REACTIONS (5)
  - Product taste abnormal [None]
  - Product substitution issue [None]
  - Cataplexy [None]
  - Narcolepsy [None]
  - Sleep paralysis [None]

NARRATIVE: CASE EVENT DATE: 20160204
